FAERS Safety Report 9806508 (Version 2)
Quarter: 2014Q1

REPORT INFORMATION
  Report Type: Spontaneous
  Country: BR (occurrence: BR)
  Receive Date: 20140109
  Receipt Date: 20140113
  Transmission Date: 20141002
  Serious: Yes (Other)
  Sender: FDA-Public Use
  Company Number: BR-PFIZER INC-2014005668

PATIENT
  Sex: Female

DRUGS (8)
  1. PRISTIQ [Suspect]
     Dosage: UNK
  2. SELOZOK [Suspect]
     Dosage: UNK
  3. DONAREN RETARD [Suspect]
     Dosage: UNK
  4. SIRDALUD [Suspect]
     Dosage: UNK
  5. CORUS H [Suspect]
     Dosage: UNK
  6. SIMVASTATIN [Suspect]
     Dosage: UNK
  7. INDAPEN [Suspect]
     Dosage: UNK
  8. SOMALGIN CARDIO [Suspect]
     Dosage: UNK

REACTIONS (7)
  - Cerebrovascular accident [Unknown]
  - Angina pectoris [Unknown]
  - Arrhythmia [Not Recovered/Not Resolved]
  - Spinal disorder [Unknown]
  - Cardiac disorder [Unknown]
  - Rotator cuff syndrome [Unknown]
  - Withdrawal syndrome [Unknown]
